FAERS Safety Report 6858037-9 (Version None)
Quarter: 2010Q3

REPORT INFORMATION
  Report Type: 
  Country: None (occurrence: None)
  Receive Date: 20100719
  Receipt Date: 20080508
  Transmission Date: 20110219
  Serious: No
  Sender: FDA-Public Use
  Company Number: US-PFIZER INC-2008009927

PATIENT
  Sex: Female
  Weight: 56.8 kg

DRUGS (6)
  1. CHANTIX [Suspect]
     Indication: SMOKING CESSATION THERAPY
     Route: 048
     Dates: start: 20070701
  2. LISINOPRIL [Concomitant]
  3. MUSCLE RELAXANTS [Concomitant]
  4. METOPROLOL [Concomitant]
  5. ALL OTHER THERAPEUTIC PRODUCTS [Concomitant]
  6. LAXATIVES [Concomitant]

REACTIONS (5)
  - FEELING COLD [None]
  - MALAISE [None]
  - NAUSEA [None]
  - TOBACCO USER [None]
  - VOMITING [None]
